FAERS Safety Report 20732361 (Version 1)
Quarter: 2022Q2

REPORT INFORMATION
  Report Type: Report from Study
  Country: IN (occurrence: IN)
  Receive Date: 20220420
  Receipt Date: 20220420
  Transmission Date: 20220721
  Serious: Yes (Other)
  Sender: FDA-Public Use
  Company Number: IN-002147023-NVSC2021IN150266

PATIENT

DRUGS (3)
  1. RUXOLITINIB [Suspect]
     Active Substance: RUXOLITINIB
     Indication: Myelofibrosis
     Dosage: 5 MG, BID
     Route: 065
     Dates: start: 20181226, end: 20210512
  2. RUXOLITINIB [Suspect]
     Active Substance: RUXOLITINIB
     Dosage: 5 MG, BID
     Route: 065
     Dates: start: 20220211
  3. RUXOLITINIB [Suspect]
     Active Substance: RUXOLITINIB
     Dosage: 5 MG, BID
     Route: 065
     Dates: start: 20220306

REACTIONS (11)
  - Anaemia [Unknown]
  - Dyspnoea exertional [Unknown]
  - Epididymitis [Unknown]
  - Skin infection [Unknown]
  - Haemoglobin decreased [Unknown]
  - Liver palpable [Unknown]
  - Spleen palpable [Unknown]
  - Product dose omission issue [Unknown]
  - Splenomegaly [Unknown]
  - Peripheral swelling [Unknown]
  - Thrombocytopenia [Unknown]

NARRATIVE: CASE EVENT DATE: 20210201
